FAERS Safety Report 25362151 (Version 1)
Quarter: 2025Q2

REPORT INFORMATION
  Report Type: Spontaneous
  Country: US (occurrence: US)
  Receive Date: 20250527
  Receipt Date: 20250527
  Transmission Date: 20250716
  Serious: No
  Sender: COREPHARMA LLC
  Company Number: US-CorePharma LLC-2177515

PATIENT

DRUGS (1)
  1. LISINOPRIL [Suspect]
     Active Substance: LISINOPRIL
     Indication: Blood pressure abnormal

REACTIONS (2)
  - Drug ineffective [Unknown]
  - Product substitution issue [Unknown]
